FAERS Safety Report 8079119-2 (Version None)
Quarter: 2012Q1

REPORT INFORMATION
  Report Type: 
  Country: None (occurrence: None)
  Receive Date: 20120128
  Receipt Date: 20110818
  Transmission Date: 20120608
  Serious: No
  Sender: FDA-Public Use
  Company Number: US-ABBOTT-11P-163-0847859-00

PATIENT
  Age: 63 Year
  Sex: Female

DRUGS (4)
  1. HUMIRA [Suspect]
     Indication: SWELLING FACE
  2. HUMIRA [Suspect]
     Indication: EYE SWELLING
  3. EVISTA [Concomitant]
     Indication: BONE DISORDER
  4. DILTIAZEM HCL [Concomitant]
     Indication: BLOOD PRESSURE

REACTIONS (3)
  - COUGH [None]
  - VITAMIN D DECREASED [None]
  - MUSCULAR WEAKNESS [None]
